FAERS Safety Report 6582489-5 (Version None)
Quarter: 2010Q1

REPORT INFORMATION
  Report Type: 
  Country: None (occurrence: None)
  Receive Date: 20100216
  Receipt Date: 20100211
  Transmission Date: 20100710
  Serious: Yes (Death)
  Sender: FDA-Public Use
  Company Number: PHHY2009DE54639

PATIENT
  Sex: Male
  Weight: 65 kg

DRUGS (11)
  1. ALISKIREN ALI+ [Suspect]
     Indication: HYPERTENSION
     Dosage: 300 MG, QD
     Dates: start: 20090109
  2. ASS [Suspect]
     Indication: CORONARY ARTERY DISEASE
     Dosage: 100 MG, QD
     Dates: start: 20001006
  3. METFORMIN [Concomitant]
     Indication: DIABETES MELLITUS
     Dosage: 500 MG, BID
     Route: 048
     Dates: start: 20071113
  4. DIURETICS [Concomitant]
     Dosage: UNK
  5. ANTIADRENERGIC AGENTS, CENTRALLY ACTING [Concomitant]
  6. PLATELET AGGREGATION INHIBITORS [Concomitant]
  7. ATACAND [Concomitant]
     Dosage: 16 MG, QD
     Dates: start: 20001006, end: 20090329
  8. MOXONIDINE [Concomitant]
     Dosage: 0.4 MG, QD
     Dates: start: 20040226
  9. CARMEN [Concomitant]
     Dosage: 20 MG, QD
     Dates: start: 20040227
  10. METOHEXAL [Concomitant]
     Dosage: 142.5 MG, QD
     Dates: start: 20081209
  11. ALLOPURINOL [Concomitant]
     Dosage: 100 MG, QD
     Dates: start: 20040226

REACTIONS (3)
  - BRAIN INJURY [None]
  - CEREBRAL DISORDER [None]
  - HAEMORRHAGE INTRACRANIAL [None]
